FAERS Safety Report 7740777-0 (Version None)
Quarter: 2011Q3

REPORT INFORMATION
  Report Type: 
  Country: None (occurrence: None)
  Receive Date: 20110909
  Receipt Date: 20110601
  Transmission Date: 20111222
  Serious: Yes (Other)
  Sender: FDA-Public Use
  Company Number: US-TYCO HEALTHCARE/MALLINCKRODT-T201101667

PATIENT

DRUGS (1)
  1. METHADOSE [Suspect]
     Dosage: UNK

REACTIONS (2)
  - MATERNAL EXPOSURE DURING PREGNANCY [None]
  - PREMATURE BABY [None]
